FAERS Safety Report 20978947 (Version 3)
Quarter: 2022Q3

REPORT INFORMATION
  Report Type: Other
  Country: US (occurrence: None)
  Receive Date: 20220619
  Receipt Date: 20220712
  Transmission Date: 20221027
  Serious: Yes (Death)
  Sender: FDA-Public Use
  Company Number: US-ROCHE-3118761

PATIENT
  Sex: Female

DRUGS (14)
  1. RITUXAN [Suspect]
     Active Substance: RITUXIMAB
     Indication: Autoimmune disorder
     Dosage: 50 ML, INFUSE 1000MG INTRAVENOUSLY ON DAY(S) 1 AND DAY(S) 15 EVERY 6 MONTH(S)
     Route: 042
     Dates: start: 20200330, end: 20210825
  2. RITUXAN [Suspect]
     Active Substance: RITUXIMAB
     Indication: Rheumatoid arthritis
  3. ACTEMRA [Suspect]
     Active Substance: TOCILIZUMAB
     Indication: Rheumatoid arthritis
     Dosage: INFUSE 4MG/KG (536MG) INTRAVENOUSLY EVERY 4 WEEK(S)
     Route: 042
  4. ACTEMRA [Suspect]
     Active Substance: TOCILIZUMAB
     Dosage: INFUSE 4MG/KG (536MG) INTRAVENOUSLY EVERY 4 WEEK(S)
     Route: 042
  5. AMITRIPTYLINE [Concomitant]
     Active Substance: AMITRIPTYLINE
     Route: 048
  6. TRAMADOL HCL [Concomitant]
     Active Substance: TRAMADOL HYDROCHLORIDE
     Route: 048
  7. HYDROMORPHONE HCL [Concomitant]
     Active Substance: HYDROMORPHONE HYDROCHLORIDE
     Dosage: 5 TIME DAILY
     Route: 048
  8. SYMBICORT [Concomitant]
     Active Substance: BUDESONIDE\FORMOTEROL FUMARATE DIHYDRATE
  9. GABAPENTIN [Concomitant]
     Active Substance: GABAPENTIN
     Dosage: THREE TIMES DAILY
     Route: 048
  10. ESTRADIOL [Concomitant]
     Active Substance: ESTRADIOL
     Dosage: DAILY
     Route: 048
  11. WARFARIN SODIUM [Concomitant]
     Active Substance: WARFARIN SODIUM
     Dosage: SUN, TUES, THURS, SAT
     Route: 048
  12. ERGOCALCIFEROL [Concomitant]
     Active Substance: ERGOCALCIFEROL
     Dosage: 1 CAPSULE ONCE A WEEK FOR 90 DAY
     Route: 048
  13. SUMATRIPTAN SUCCINATE [Concomitant]
     Active Substance: SUMATRIPTAN SUCCINATE
     Route: 048
  14. PROAIR HFA [Concomitant]
     Active Substance: ALBUTEROL SULFATE
     Dosage: AS NEEDED

REACTIONS (3)
  - Death [Fatal]
  - Drug ineffective [Unknown]
  - Pain [Unknown]
